FAERS Safety Report 24778649 (Version 3)
Quarter: 2025Q2

REPORT INFORMATION
  Report Type: Spontaneous
  Country: US (occurrence: US)
  Receive Date: 20241226
  Receipt Date: 20250409
  Transmission Date: 20250716
  Serious: Yes (Other)
  Sender: NOVARTIS
  Company Number: US-002147023-NVSC2024US242809

PATIENT

DRUGS (1)
  1. KESIMPTA [Suspect]
     Active Substance: OFATUMUMAB
     Indication: Product used for unknown indication
     Route: 065

REACTIONS (11)
  - Precancerous condition [Unknown]
  - Multiple sclerosis [Unknown]
  - Hypoaesthesia [Unknown]
  - Limb discomfort [Unknown]
  - Feeling hot [Unknown]
  - Stress [Unknown]
  - Influenza like illness [Unknown]
  - Nausea [Unknown]
  - Headache [Unknown]
  - Chills [Unknown]
  - Injection site reaction [Unknown]
